FAERS Safety Report 4951621-9 (Version None)
Quarter: 2006Q1

REPORT INFORMATION
  Report Type: 
  Country: None (occurrence: None)
  Receive Date: 20060320
  Receipt Date: 20060314
  Transmission Date: 20060701
  Serious: Yes (Hospitalization)
  Sender: FDA-Public Use
  Company Number: GBWYE470014MAR06

PATIENT
  Age: 86 Year
  Sex: Male

DRUGS (1)
  1. IBUPROFEN [Suspect]
     Indication: PAIN
     Dosage: 200MG AS NEEDED
     Route: 048
     Dates: end: 20060123

REACTIONS (6)
  - ANAEMIA [None]
  - ASTHENIA [None]
  - BARRETT'S OESOPHAGUS [None]
  - GASTRIC ULCER [None]
  - GASTRITIS EROSIVE [None]
  - MELAENA [None]
